FAERS Safety Report 9160050 (Version 1)
Quarter: 2013Q1

REPORT INFORMATION
  Report Type: Spontaneous
  Country: SE (occurrence: SE)
  Receive Date: 20130313
  Receipt Date: 20130313
  Transmission Date: 20140127
  Serious: Yes (Other)
  Sender: FDA-Public Use
  Company Number: PHHY2013SE024204

PATIENT
  Sex: Male

DRUGS (1)
  1. TEGRETOL RETARD [Suspect]
     Dosage: 200 MG, UNK

REACTIONS (2)
  - Haemochromatosis [Unknown]
  - Arthralgia [Unknown]
